FAERS Safety Report 4790725-0 (Version None)
Quarter: 2005Q3

REPORT INFORMATION
  Report Type: 
  Country: None (occurrence: None)
  Receive Date: 20050914
  Receipt Date: 20041227
  Transmission Date: 20060218
  Serious: Yes (Other)
  Sender: FDA-Public Use
  Company Number: 163-20785-04120597

PATIENT
  Age: 71 Year
  Sex: Male

DRUGS (10)
  1. THALOMID [Suspect]
     Indication: MULTIPLE MYELOMA
     Dosage: 50MG-100MG, DAILY, ORAL
     Route: 048
     Dates: start: 20031022, end: 20041220
  2. INSULIN [Concomitant]
  3. SYNTHROID [Concomitant]
  4. ASPIRIN [Concomitant]
  5. CALCIUM (CALCIUM) [Concomitant]
  6. ZOCOR [Concomitant]
  7. DECADRON [Concomitant]
  8. NORTRIPTYLINE HCL [Concomitant]
  9. TEMAZEPAM [Concomitant]
  10. VITAMINS (VITAMINS) [Concomitant]

REACTIONS (3)
  - FALL [None]
  - HYPOAESTHESIA [None]
  - LOSS OF CONSCIOUSNESS [None]
